FAERS Safety Report 22626506 (Version 1)
Quarter: 2023Q2

REPORT INFORMATION
  Report Type: Spontaneous
  Country: NL (occurrence: NL)
  Receive Date: 20230621
  Receipt Date: 20230621
  Transmission Date: 20230722
  Serious: Yes (Other)
  Sender: FDA-Public Use
  Company Number: None

PATIENT
  Sex: Female
  Weight: 60 kg

DRUGS (3)
  1. FAMOTIDINE [Interacting]
     Active Substance: FAMOTIDINE
     Indication: Abdominal discomfort
     Dosage: 1 PIECE 2X A DAY
     Route: 065
     Dates: start: 20230513, end: 20230530
  2. CITALOPRAM HYDROBROMIDE [Interacting]
     Active Substance: CITALOPRAM HYDROBROMIDE
     Indication: Anxiety disorder
     Dosage: 40 MG/ML, 1X PER DAY 8 DROPS
     Route: 065
     Dates: start: 20220601
  3. CITALOPRAM HYDROBROMIDE [Interacting]
     Active Substance: CITALOPRAM HYDROBROMIDE
     Indication: Depression

REACTIONS (6)
  - Suicidal ideation [Recovering/Resolving]
  - Tremor [Recovering/Resolving]
  - Drug interaction [Unknown]
  - Asthenia [Recovering/Resolving]
  - Anxiety [Recovering/Resolving]
  - Depression [Recovering/Resolving]
